FAERS Safety Report 16060117 (Version 2)
Quarter: 2021Q2

REPORT INFORMATION
  Report Type: Spontaneous
  Country: PT (occurrence: PT)
  Receive Date: 20190312
  Receipt Date: 20210604
  Transmission Date: 20210716
  Serious: Yes (Hospitalization, Other)
  Sender: FDA-Public Use
  Company Number: PT-AUROBINDO-AUR-APL-2019-012412

PATIENT
  Age: 60 Year
  Sex: Male

DRUGS (2)
  1. ESCITALOPRAM [Suspect]
     Active Substance: ESCITALOPRAM OXALATE
     Indication: MAJOR DEPRESSION
     Dosage: 20 MILLIGRAM, ONCE A DAY
     Route: 048
  2. ESCITALOPRAM [Suspect]
     Active Substance: ESCITALOPRAM OXALATE
     Dosage: 20 MILLIGRAM, LESS THAN 12 MONTHS
     Route: 065
     Dates: start: 2017, end: 2017

REACTIONS (11)
  - Compulsive shopping [Unknown]
  - Mania [Unknown]
  - Disorganised speech [Unknown]
  - Pressure of speech [Unknown]
  - Intentional dose omission [Unknown]
  - Withdrawal syndrome [Recovered/Resolved]
  - Drug withdrawal syndrome [Unknown]
  - Irritability [Unknown]
  - Psychomotor hyperactivity [Unknown]
  - Euphoric mood [Unknown]
  - Delusion of grandeur [Unknown]

NARRATIVE: CASE EVENT DATE: 2017
